FAERS Safety Report 5531412-0 (Version None)
Quarter: 2007Q4

REPORT INFORMATION
  Report Type: 
  Country: None (occurrence: None)
  Receive Date: 20071203
  Receipt Date: 20071126
  Transmission Date: 20080405
  Serious: Yes (Hospitalization)
  Sender: FDA-Public Use
  Company Number: DE-JNJFOC-20071110619

PATIENT

DRUGS (1)
  1. HALDOL [Suspect]
     Indication: DRUG USE FOR UNKNOWN INDICATION
     Route: 065

REACTIONS (6)
  - GAIT DISTURBANCE [None]
  - HEMIPLEGIA [None]
  - MENTAL IMPAIRMENT [None]
  - TIC [None]
  - TREMOR [None]
  - VISUAL DISTURBANCE [None]
